FAERS Safety Report 18588383 (Version 1)
Quarter: 2020Q4

REPORT INFORMATION
  Report Type: Spontaneous
  Country: FR (occurrence: FR)
  Receive Date: 20201208
  Receipt Date: 20201208
  Transmission Date: 20210114
  Serious: Yes (Life-Threatening, Hospitalization)
  Sender: FDA-Public Use
  Company Number: FR-ROCHE-2726091

PATIENT
  Age: 71 Year
  Sex: Male
  Weight: 101 kg

DRUGS (8)
  1. AMOXICILLIN CLAVULANIC ACID [Concomitant]
     Active Substance: AMOXICILLIN\CLAVULANIC ACID
  2. SALBUTAMOL [Concomitant]
     Active Substance: ALBUTEROL
  3. IPRATROPIUM [Concomitant]
     Active Substance: IPRATROPIUM
  4. LANSOPRAZOLE MYLAN [Concomitant]
     Active Substance: LANSOPRAZOLE
     Dosage: ORODISPERSIBLE TABLET
  5. VALIUM [Suspect]
     Active Substance: DIAZEPAM
     Indication: DELIRIUM TREMENS
     Route: 048
     Dates: start: 20200109, end: 20200109
  6. BEVITINE [Concomitant]
     Active Substance: THIAMINE HYDROCHLORIDE
     Dosage: 100 MG / 2 ML, SOLUTION FOR INJECTION IN AMPOULE
  7. SERESTA [Suspect]
     Active Substance: OXAZEPAM
     Indication: DELIRIUM TREMENS
     Route: 048
     Dates: start: 20200108, end: 20200108
  8. VITAMINE PP AGUETTANT [Concomitant]

REACTIONS (5)
  - Coma [Recovered/Resolved]
  - Respiratory acidosis [Recovered/Resolved]
  - Respiratory distress [Recovered/Resolved]
  - Coma scale abnormal [Recovered/Resolved]
  - Hypercapnia [Recovered/Resolved]

NARRATIVE: CASE EVENT DATE: 20200109
